FAERS Safety Report 8951335 (Version 1)
Quarter: 2012Q4

REPORT INFORMATION
  Report Type: 
  Country: FR (occurrence: FR)
  Receive Date: 20121207
  Receipt Date: 20121207
  Transmission Date: 20130627
  Serious: Yes (Hospitalization)
  Sender: FDA-Public Use
  Company Number: FR-009507513-1211FRA011522

PATIENT
  Age: 36 Year
  Sex: Female

DRUGS (2)
  1. NORSET [Suspect]
     Indication: BURNOUT SYNDROME
     Route: 048
  2. TIAPRIDAL [Suspect]
     Indication: BURNOUT SYNDROME

REACTIONS (1)
  - Orthostatic hypotension [Not Recovered/Not Resolved]
